FAERS Safety Report 18209715 (Version 2)
Quarter: 2020Q3

REPORT INFORMATION
  Report Type: Spontaneous
  Country: FR (occurrence: FR)
  Receive Date: 20200829
  Receipt Date: 20200916
  Transmission Date: 20201103
  Serious: Yes (Life-Threatening, Hospitalization, Other)
  Sender: FDA-Public Use
  Company Number: FR-AUROBINDO-AUR-APL-2020-044946

PATIENT
  Age: 60 Year
  Sex: Male
  Weight: 95 kg

DRUGS (1)
  1. LEVOFLOXACINE ARROW FILM?COATED TABLETS 500MG [Suspect]
     Active Substance: LEVOFLOXACIN
     Indication: INFECTIVE AORTITIS
     Dosage: 250 MILLIGRAM, TWO TIMES A DAY
     Route: 048
     Dates: start: 20200717, end: 20200808

REACTIONS (1)
  - Aortic rupture [Recovering/Resolving]

NARRATIVE: CASE EVENT DATE: 20200808
